FAERS Safety Report 21527238 (Version 1)
Quarter: 2022Q4

REPORT INFORMATION
  Report Type: Spontaneous
  Country: FR (occurrence: FR)
  Receive Date: 20221031
  Receipt Date: 20221031
  Transmission Date: 20230113
  Serious: Yes (Hospitalization)
  Sender: FDA-Public Use
  Company Number: None

PATIENT
  Age: 36 Year
  Sex: Female

DRUGS (4)
  1. AMOXICILLIN [Suspect]
     Active Substance: AMOXICILLIN
     Indication: Poisoning deliberate
     Dosage: MORE THEN 6G (UNE BOITE 6CP 1G RETROUVEE)
     Route: 048
     Dates: start: 20211216, end: 20211216
  2. IBUPROFEN [Suspect]
     Active Substance: IBUPROFEN
     Indication: Poisoning deliberate
     Dosage: 6 G, ONCE/SINGLE (30CP DE 200MG SOIT 6G D^IBUPROFENE)
     Route: 048
     Dates: start: 20211216, end: 20211216
  3. DAFALGAN CODEINE [Suspect]
     Active Substance: ACETAMINOPHEN\CODEINE PHOSPHATE
     Indication: Poisoning deliberate
     Dosage: 32 CP SOIT 16G DE PARACETAMOL ET 960MG DE CODEINE
     Route: 065
     Dates: start: 20211216, end: 20211216
  4. JOSAMYCIN [Suspect]
     Active Substance: JOSAMYCIN
     Indication: Poisoning deliberate
     Dosage: LESS THAN 6G (1 FLACON 60ML RETROUVE)
     Route: 048
     Dates: start: 20211216, end: 20211216

REACTIONS (3)
  - Toxicity to various agents [Recovered/Resolved]
  - Hepatic cytolysis [Recovering/Resolving]
  - Vomiting [Recovered/Resolved]

NARRATIVE: CASE EVENT DATE: 20211216
